FAERS Safety Report 16178455 (Version 1)
Quarter: 2019Q2

REPORT INFORMATION
  Report Type: Spontaneous
  Country: US (occurrence: US)
  Receive Date: 20190409
  Receipt Date: 20190409
  Transmission Date: 20190711
  Serious: Yes (Other)
  Sender: FDA-Public Use
  Company Number: None

PATIENT
  Age: 62 Year
  Sex: Female

DRUGS (2)
  1. MULTIPLE VITAMIN [Concomitant]
     Active Substance: VITAMINS
  2. PAPA + BEARDSLEY RELEAF TRANSDERMAL PATCH [Suspect]
     Active Substance: CANNABIS SATIVA SUBSP. INDICA TOP

REACTIONS (1)
  - Anxiety [None]

NARRATIVE: CASE EVENT DATE: 20190309
